FAERS Safety Report 23021252 (Version 1)
Quarter: 2023Q4

REPORT INFORMATION
  Report Type: Spontaneous
  Country: US (occurrence: US)
  Receive Date: 20231003
  Receipt Date: 20231003
  Transmission Date: 20240109
  Serious: Yes (Death, Hospitalization, Other)
  Sender: FDA-Public Use
  Company Number: US-AMNEAL PHARMACEUTICALS-2023-AMRX-03372

PATIENT
  Sex: Female

DRUGS (1)
  1. COLCHICINE [Suspect]
     Active Substance: COLCHICINE
     Indication: Product used for unknown indication
     Dosage: 54 MG COLCHICINE (0.68MG/KG)
     Route: 065

REACTIONS (12)
  - Disseminated intravascular coagulation [Fatal]
  - Toxicity to various agents [Fatal]
  - Multiple organ dysfunction syndrome [Fatal]
  - Intentional overdose [Fatal]
  - Respiratory acidosis [Unknown]
  - Lactic acidosis [Unknown]
  - Hypotension [Unknown]
  - Toxic cardiomyopathy [Unknown]
  - Hypoglycaemia [Unknown]
  - Ileus [Unknown]
  - Haemorrhage [Unknown]
  - Leukocytosis [Unknown]
